FAERS Safety Report 15343468 (Version 1)
Quarter: 2018Q3

REPORT INFORMATION
  Report Type: Spontaneous
  Country: US (occurrence: US)
  Receive Date: 20180903
  Receipt Date: 20180903
  Transmission Date: 20181010
  Serious: No
  Sender: FDA-Public Use
  Company Number: US-PFIZER INC-2018348205

PATIENT
  Age: 69 Year
  Sex: Female

DRUGS (1)
  1. LATANOPROST. [Suspect]
     Active Substance: LATANOPROST
     Indication: GLAUCOMA
     Dosage: 1 DF, DAILY (ONE DROP PER EYE EVERY EVENING)

REACTIONS (6)
  - Migraine [Unknown]
  - Product packaging issue [Unknown]
  - Intentional product misuse [Unknown]
  - Eye discharge [Unknown]
  - Intentional dose omission [Unknown]
  - Incorrect dose administered [Unknown]
